FAERS Safety Report 8852922 (Version 1)
Quarter: 2012Q4

REPORT INFORMATION
  Report Type: 
  Country: FR (occurrence: FR)
  Receive Date: 20121022
  Receipt Date: 20121022
  Transmission Date: 20130627
  Serious: Yes (Hospitalization)
  Sender: FDA-Public Use
  Company Number: PHHY2012FR092192

PATIENT
  Age: 47 Year

DRUGS (1)
  1. ENOXAPARIN [Suspect]
     Indication: ANTICOAGULANT THERAPY

REACTIONS (5)
  - Poisoning deliberate [Unknown]
  - Thrombocytosis [Recovering/Resolving]
  - Skin necrosis [Recovering/Resolving]
  - Heparin-induced thrombocytopenia [Unknown]
  - Injection site haematoma [Recovering/Resolving]
